FAERS Safety Report 8210627-7 (Version None)
Quarter: 2012Q1

REPORT INFORMATION
  Report Type: 
  Country: None (occurrence: None)
  Receive Date: 20120314
  Receipt Date: 20120312
  Transmission Date: 20120608
  Serious: Yes (Other)
  Sender: FDA-Public Use
  Company Number: ES-MERCK-1203ESP00012

PATIENT
  Age: 31 Year
  Sex: Female

DRUGS (1)
  1. SINGULAIR [Suspect]
     Route: 048
     Dates: start: 20120213, end: 20120220

REACTIONS (6)
  - TREMOR [None]
  - DIARRHOEA [None]
  - HEADACHE [None]
  - ANXIETY [None]
  - NIGHTMARE [None]
  - SLEEP DISORDER [None]
